FAERS Safety Report 22134986 (Version 1)
Quarter: 2023Q1

REPORT INFORMATION
  Report Type: Spontaneous
  Country: US (occurrence: None)
  Receive Date: 20230323
  Receipt Date: 20230323
  Transmission Date: 20230418
  Serious: No
  Sender: FDA-Public Use
  Company Number: None

PATIENT
  Age: 56 Year
  Sex: Female
  Weight: 58.5 kg

DRUGS (6)
  1. REPATHA [Suspect]
     Active Substance: EVOLOCUMAB
     Indication: Lipids increased
     Dosage: OTHER FREQUENCY : BI WEEKLY;?
     Route: 030
     Dates: start: 20220202, end: 20230202
  2. Warafin 4 mg [Concomitant]
  3. losartin potassium 25 mg [Concomitant]
  4. HYDROCHLOROTHIAZIDE [Concomitant]
     Active Substance: HYDROCHLOROTHIAZIDE
  5. CentrumSilver 50+ [Concomitant]
  6. Tylenol extra strength as needed [Concomitant]

REACTIONS (1)
  - Vision blurred [None]

NARRATIVE: CASE EVENT DATE: 20220202
